FAERS Safety Report 24532708 (Version 1)
Quarter: 2024Q4

REPORT INFORMATION
  Report Type: Spontaneous
  Country: FR (occurrence: FR)
  Receive Date: 20241022
  Receipt Date: 20241022
  Transmission Date: 20250115
  Serious: Yes (Hospitalization)
  Sender: RANBAXY
  Company Number: FR-AFSSAPS-AVBX2024000463

PATIENT
  Age: 17 Year
  Sex: Male

DRUGS (2)
  1. PREGABALIN [Suspect]
     Active Substance: PREGABALIN
     Indication: Drug use disorder
     Dosage: UNK
     Route: 065
     Dates: start: 2023
  2. CLONAZEPAM [Suspect]
     Active Substance: CLONAZEPAM
     Indication: Drug use disorder
     Dosage: UNK
     Route: 065
     Dates: start: 2023

REACTIONS (1)
  - Drug abuse [Not Recovered/Not Resolved]

NARRATIVE: CASE EVENT DATE: 20230101
